FAERS Safety Report 17414337 (Version 2)
Quarter: 2020Q1

REPORT INFORMATION
  Report Type: Spontaneous
  Country: US (occurrence: US)
  Receive Date: 20200213
  Receipt Date: 20200313
  Transmission Date: 20200409
  Serious: No
  Sender: FDA-Public Use
  Company Number: US-VERTEX PHARMACEUTICALS-2020-002751

PATIENT
  Age: 11 Year
  Sex: Female

DRUGS (16)
  1. FLUTICASONE PROPIONATE. [Concomitant]
     Active Substance: FLUTICASONE PROPIONATE
     Dosage: 1 SPRAY IN EACH NOSTRIL ONCE DAILY, INCREASE TO TWICE DAILY WHEN ALLERGIES NOT CONTROLLED
     Route: 045
     Dates: start: 20161214
  2. POLYETHYLENE GLYCOL [Concomitant]
     Active Substance: POLYETHYLENE GLYCOLS
     Indication: CONSTIPATION
     Dosage: UNK
     Dates: start: 20161101
  3. PULMOZYME [Concomitant]
     Active Substance: DORNASE ALFA
     Dosage: INHALE ONE VIAL DAILY
     Route: 055
  4. SYMDEKO [Suspect]
     Active Substance: IVACAFTOR\TEZACAFTOR
     Indication: CYSTIC FIBROSIS
     Dosage: TEZACAFTOR 100 MG,, IVACAFTOR 150 MG; IVACAFTOR150 MG, BID
     Route: 048
     Dates: start: 201909
  5. ALBUTEROL SULFATE. [Concomitant]
     Active Substance: ALBUTEROL SULFATE
     Dosage: UNK MILLILITER
     Dates: start: 20161130
  6. AZELASTINE HCL [Concomitant]
     Active Substance: AZELASTINE HYDROCHLORIDE
     Indication: NASAL CONGESTION
     Dosage: 1-2 SPRAY EACH NOSTRIL 1-2 TIMES DAILY
     Route: 055
     Dates: start: 20191217
  7. PEDIASURE [NUTRIENTS NOS] [Concomitant]
     Dosage: 240 MILLILITERS 4 TIMES A DAY
     Route: 048
     Dates: start: 20191226
  8. PROAIR HFA [Concomitant]
     Active Substance: ALBUTEROL SULFATE
     Indication: COUGH
     Dosage: 4 PUFFS BID AND 2 TO 4 PUFFS EVERY 4- 6 HOURS AS NEEDED
     Dates: start: 20190628
  9. CREON [Concomitant]
     Active Substance: PANCRELIPASE AMYLASE\PANCRELIPASE LIPASE\PANCRELIPASE PROTEASE
     Dosage: 2 CAPSULES WITH MEALS AND TUBE FEEDS AND 1 CAP WITH SNACKS
     Route: 048
     Dates: start: 20180221
  10. PROAIR HFA [Concomitant]
     Active Substance: ALBUTEROL SULFATE
     Indication: WHEEZING
  11. LIDOCAINE PRILOCAINE BIOGARAN [Concomitant]
     Dosage: APPLY 1 HOUR BEFORE PROCEDURE TO PORTSITE
     Dates: start: 20190423
  12. SODIUM CHLORIDE. [Concomitant]
     Active Substance: SODIUM CHLORIDE
     Dosage: UNK
     Route: 055
     Dates: start: 20170421
  13. CYPROHEPTADINE HCL [Concomitant]
     Active Substance: CYPROHEPTADINE HYDROCHLORIDE
     Dosage: UNK
     Route: 048
     Dates: start: 20190617
  14. VENTOLIN HFA [Concomitant]
     Active Substance: ALBUTEROL SULFATE
     Indication: COUGH
     Dosage: 4 PUFFS BID AND 2-4 PUFFS EVERY 4 TO 6 HOURS
     Dates: start: 20170618
  15. VENTOLIN HFA [Concomitant]
     Active Substance: ALBUTEROL SULFATE
     Indication: WHEEZING
  16. LORATADINE. [Concomitant]
     Active Substance: LORATADINE
     Dosage: 1 TABLET
     Route: 048
     Dates: start: 20190208

REACTIONS (1)
  - Ear infection [Recovered/Resolved]

NARRATIVE: CASE EVENT DATE: 20200106
